FAERS Safety Report 9466180 (Version 2)
Quarter: 2013Q3

REPORT INFORMATION
  Report Type: Spontaneous
  Country: CH (occurrence: CH)
  Receive Date: 20130820
  Receipt Date: 20130822
  Transmission Date: 20140515
  Serious: Yes (Hospitalization, Other)
  Sender: FDA-Public Use
  Company Number: CH-009507513-1308CHE007994

PATIENT
  Age: 52 Year
  Sex: Female

DRUGS (2)
  1. REMERON [Suspect]
     Dosage: 20 TABLETS AT ONCE
     Route: 048
     Dates: start: 20120713, end: 20120713
  2. BACLOFEN [Suspect]
     Dosage: 40 TABLETS, ONCE
     Route: 048
     Dates: start: 20120713, end: 20120713

REACTIONS (5)
  - Coma [Recovered/Resolved]
  - Delirium [Recovered/Resolved]
  - Agitation [Recovered/Resolved]
  - Suicide attempt [Recovered/Resolved]
  - Somnolence [Recovered/Resolved]
